FAERS Safety Report 6029319-8 (Version None)
Quarter: 2009Q1

REPORT INFORMATION
  Report Type: 
  Country: None (occurrence: None)
  Receive Date: 20090106
  Receipt Date: 20081231
  Transmission Date: 20090719
  Serious: Yes (Death)
  Sender: FDA-Public Use
  Company Number: US-GILEAD-2008-0019576

PATIENT
  Sex: Male
  Weight: 102.15 kg

DRUGS (22)
  1. LETAIRIS [Suspect]
     Indication: PULMONARY ARTERIAL HYPERTENSION
     Route: 048
     Dates: start: 20071007, end: 20081218
  2. COUMADIN [Concomitant]
  3. SPIRONOLACTONE [Concomitant]
  4. DEMADEX [Concomitant]
  5. METOLAZONE [Concomitant]
  6. TOPROL-XL [Concomitant]
  7. SPIRIVA [Concomitant]
  8. XOPENEX [Concomitant]
  9. JANUVIA [Concomitant]
  10. ZYRTEC [Concomitant]
  11. AVELOX [Concomitant]
  12. ALLEGRA [Concomitant]
  13. LEVOTHYROXINE [Concomitant]
  14. NEXIUM [Concomitant]
  15. ASPIRIN [Concomitant]
  16. MULTI-VITAMIN [Concomitant]
  17. ACIPHEX [Concomitant]
  18. VYTORIN [Concomitant]
  19. POTASSIUM CHLORIDE [Concomitant]
  20. MAG-OXIDE [Concomitant]
  21. FISH OIL [Concomitant]
  22. OSTEO-BIFLEX [Concomitant]

REACTIONS (2)
  - ARRHYTHMIA [None]
  - CARDIO-RESPIRATORY ARREST [None]
